FAERS Safety Report 8185157-1 (Version None)
Quarter: 2012Q1

REPORT INFORMATION
  Report Type: 
  Country: None (occurrence: None)
  Receive Date: 20120301
  Receipt Date: 20120220
  Transmission Date: 20120608
  Serious: Yes (Hospitalization, Other)
  Sender: FDA-Public Use
  Company Number: AUR-APL-2012-01113

PATIENT
  Age: 53 Year
  Sex: Female
  Weight: 112 kg

DRUGS (21)
  1. NITROSTAT [Concomitant]
  2. REMERON [Concomitant]
  3. EFFEXOR XR [Suspect]
     Dosage: ORAL
     Route: 048
  4. PLAVIX [Concomitant]
  5. HYDROCHLOROTHIAZIDE [Concomitant]
  6. PAXIL [Concomitant]
  7. ASPIRIN [Concomitant]
  8. RISPERIDONE [Suspect]
  9. ZOCOR [Concomitant]
  10. CHORIONIC GONADOTROPIN [Concomitant]
  11. LITHIUM CARBONATE [Suspect]
  12. NEXIUM [Concomitant]
  13. NEURONTIN [Concomitant]
  14. KLONOPIN [Concomitant]
  15. ALAVERT [Concomitant]
  16. CARAFATE [Concomitant]
  17. LISINOPRIL [Concomitant]
  18. SEROQUEL [Concomitant]
  19. WELLBUTRIN [Concomitant]
  20. SYNTHROID [Concomitant]
  21. IMDUR [Concomitant]

REACTIONS (3)
  - ABNORMAL BEHAVIOUR [None]
  - TOXICITY TO VARIOUS AGENTS [None]
  - SUICIDE ATTEMPT [None]
